FAERS Safety Report 4878852-0 (Version None)
Quarter: 2006Q1

REPORT INFORMATION
  Report Type: 
  Country: None (occurrence: None)
  Receive Date: 20060112
  Receipt Date: 20060110
  Transmission Date: 20060701
  Serious: Yes (Hospitalization)
  Sender: FDA-Public Use
  Company Number: 428897

PATIENT
  Age: 85 Year
  Sex: Male

DRUGS (5)
  1. KREDEX [Suspect]
     Dosage: 3.125MG TWICE PER DAY
     Route: 048
     Dates: end: 20051109
  2. DIFFU K [Concomitant]
  3. PREVISCAN [Concomitant]
  4. FUROSEMIDE [Concomitant]
  5. TRIATEC [Concomitant]

REACTIONS (3)
  - BRADYCARDIA [None]
  - DYSPNOEA [None]
  - ELECTROCARDIOGRAM QRS COMPLEX PROLONGED [None]
